FAERS Safety Report 4751861-8 (Version None)
Quarter: 2005Q3

REPORT INFORMATION
  Report Type: 
  Country: None (occurrence: None)
  Receive Date: 20050822
  Receipt Date: 20050426
  Transmission Date: 20060218
  Serious: No
  Sender: FDA-Public Use
  Company Number: PHEH2005US04785

PATIENT
  Age: 86 Year
  Sex: Female

DRUGS (3)
  1. ZELNORM [Suspect]
     Indication: ABDOMINAL DISTENSION
     Dosage: 6 MG, BID, ORAL
     Route: 048
     Dates: start: 20050421
  2. PREVACID [Concomitant]
  3. LOPID [Concomitant]

REACTIONS (3)
  - ANXIETY [None]
  - ASTHENIA [None]
  - HYPERHIDROSIS [None]
